FAERS Safety Report 7226285-4 (Version None)
Quarter: 2011Q1

REPORT INFORMATION
  Report Type: 
  Country: None (occurrence: None)
  Receive Date: 20110114
  Receipt Date: 20110105
  Transmission Date: 20110831
  Serious: Yes (Other)
  Sender: FDA-Public Use
  Company Number: CHPA2009US20793

PATIENT
  Sex: Female
  Weight: 48.526 kg

DRUGS (17)
  1. MULTIVITAMIN [Concomitant]
     Dosage: UNK
     Route: 048
  2. MAGNESIUM [Concomitant]
  3. VOLTAREN [Suspect]
     Dosage: 4 G, ONCE/SINGLE, ON BOTH KNEES ONE DAY IN SEP 2009
     Route: 061
     Dates: start: 20090901, end: 20090901
  4. AMLODIPINE [Concomitant]
  5. STOOL SOFTENER [Concomitant]
  6. PRILOSEC [Concomitant]
     Indication: GASTROOESOPHAGEAL REFLUX DISEASE
     Dosage: 1 DF, PRN
     Route: 048
  7. HYDROCHLOROTHIAZIDE [Concomitant]
  8. ASCORBIC ACID [Concomitant]
  9. FOSAMAX [Concomitant]
     Indication: OSTEOPENIA
  10. FOSAMAX [Concomitant]
     Indication: OSTEOPOROSIS
     Dosage: 70 MG, QW
     Route: 048
     Dates: start: 19980101
  11. NORVASC [Concomitant]
     Indication: HYPERTENSION
     Dosage: 5 MG, QD
     Route: 048
     Dates: start: 19890101
  12. VOLTAREN [Suspect]
     Indication: OSTEOARTHRITIS
     Dosage: UNK, ONCE A DAY
     Route: 061
     Dates: start: 20101211
  13. LUTEIN [Concomitant]
  14. VOLTAREN [Suspect]
     Dosage: UNK, 2 GRAMS ONCE EACH DAY ON 6 DIFFERENT DAYS IN SEP 2009
     Route: 061
     Dates: start: 20090901, end: 20090901
  15. LEVOTHYROXINE [Concomitant]
     Indication: HYPOTHYROIDISM
     Dosage: 0.075 UG, QD
     Route: 048
     Dates: start: 19920101
  16. OYSTER SHELL CALCIUM [Concomitant]
  17. CORTISONE [Concomitant]

REACTIONS (6)
  - BURNING SENSATION [None]
  - BURSITIS [None]
  - RASH ERYTHEMATOUS [None]
  - SPONDYLITIS [None]
  - PAIN [None]
  - RASH PRURITIC [None]
